FAERS Safety Report 14661421 (Version 1)
Quarter: 2018Q1

REPORT INFORMATION
  Report Type: Spontaneous
  Country: US (occurrence: US)
  Receive Date: 20180320
  Receipt Date: 20180320
  Transmission Date: 20180509
  Serious: No
  Sender: FDA-Public Use
  Company Number: US-MYLANLABS-2018M1014124

PATIENT
  Sex: Female

DRUGS (1)
  1. DESVENLAFAXINE EXTENDED-RELEASE TABLETS [Suspect]
     Active Substance: DESVENLAFAXINE SUCCINATE
     Indication: PRODUCT USED FOR UNKNOWN INDICATION
     Dosage: 50 MG, UNK
     Route: 048

REACTIONS (3)
  - Rash pruritic [Recovered/Resolved]
  - Gastrooesophageal reflux disease [Recovered/Resolved]
  - Skin sensitisation [Recovered/Resolved]
